FAERS Safety Report 8537425-9 (Version None)
Quarter: 2012Q3

REPORT INFORMATION
  Report Type: 
  Country: None (occurrence: None)
  Receive Date: 20120725
  Receipt Date: 20120412
  Transmission Date: 20120928
  Serious: No
  Sender: FDA-Public Use
  Company Number: US-MYLANLABS-2012S1007885

PATIENT
  Age: 29 Year
  Sex: Female

DRUGS (3)
  1. LIOTHYRONINE SODIUM [Suspect]
     Indication: THYROID HORMONE REPLACEMENT THERAPY
     Route: 048
     Dates: start: 20110201, end: 20110401
  2. LIOTHYRONINE SODIUM [Suspect]
     Route: 048
     Dates: start: 20110201, end: 20110401
  3. SUDAFED 12 HOUR [Suspect]
     Dates: start: 20110201, end: 20110101

REACTIONS (6)
  - PALPITATIONS [None]
  - THYROID FUNCTION TEST ABNORMAL [None]
  - DRUG INEFFECTIVE [None]
  - DYSPNOEA [None]
  - LOSS OF CONSCIOUSNESS [None]
  - TACHYCARDIA [None]
